FAERS Safety Report 8521650-7 (Version None)
Quarter: 2012Q3

REPORT INFORMATION
  Report Type: 
  Country: None (occurrence: None)
  Receive Date: 20120719
  Receipt Date: 20120717
  Transmission Date: 20120928
  Serious: Yes (Death)
  Sender: FDA-Public Use
  Company Number: PHHY2012NL061421

PATIENT
  Sex: Female

DRUGS (3)
  1. ZOMETA [Suspect]
     Indication: BREAST CANCER METASTATIC
     Dosage: 4 MG, ONCE PER 28 DAYS
     Route: 042
  2. ZOMETA [Suspect]
     Dosage: 4 MG, ONCE PER 28 DAYS
     Route: 042
     Dates: start: 20100928
  3. ZOMETA [Suspect]
     Dosage: 4 MG, ONCE PER DAYS
     Route: 042
     Dates: start: 20120612

REACTIONS (1)
  - DEATH [None]
